FAERS Safety Report 13132369 (Version 1)
Quarter: 2017Q1

REPORT INFORMATION
  Report Type: Spontaneous
  Country: US (occurrence: US)
  Receive Date: 20170120
  Receipt Date: 20170120
  Transmission Date: 20170428
  Serious: No
  Sender: FDA-Public Use
  Company Number: US-BIOGEN-2017BI00343292

PATIENT
  Age: 42 Year
  Sex: Female

DRUGS (1)
  1. PLEGRIDY [Suspect]
     Active Substance: PEGINTERFERON BETA-1A
     Indication: MULTIPLE SCLEROSIS
     Route: 058
     Dates: start: 20170112

REACTIONS (6)
  - Influenza like illness [Recovered/Resolved]
  - Hyperhidrosis [Recovered/Resolved]
  - Dizziness [Not Recovered/Not Resolved]
  - Musculoskeletal disorder [Not Recovered/Not Resolved]
  - Muscular weakness [Unknown]
  - Asthenia [Unknown]

NARRATIVE: CASE EVENT DATE: 201701
